FAERS Safety Report 7009397-X (Version None)
Quarter: 2010Q3

REPORT INFORMATION
  Report Type: 
  Country: None (occurrence: None)
  Receive Date: 20100921
  Receipt Date: 20100909
  Transmission Date: 20110219
  Serious: Yes (Hospitalization)
  Sender: FDA-Public Use
  Company Number: 1000015480

PATIENT
  Age: 78 Year
  Sex: Male
  Weight: 82 kg

DRUGS (4)
  1. MEMANTINE HCL [Suspect]
     Indication: ABNORMAL BEHAVIOUR
     Dosage: ORAL
     Route: 048
     Dates: start: 20100201, end: 20100708
  2. MEMANTINE HCL [Suspect]
     Indication: DEMENTIA
     Dosage: ORAL
     Route: 048
     Dates: start: 20100201, end: 20100708
  3. RIVASTIGMINE (RIVASTIGMINE) (TABLETS) (RIVASTIGMINE) [Concomitant]
  4. HALOPERIDOL (HALOPERIDOL) (DROPS) (HALOPERIDOL) [Concomitant]

REACTIONS (1)
  - BONE MARROW FAILURE [None]
